FAERS Safety Report 23406149 (Version 1)
Quarter: 2024Q1

REPORT INFORMATION
  Report Type: Spontaneous
  Country: US (occurrence: US)
  Receive Date: 20240116
  Receipt Date: 20240116
  Transmission Date: 20240409
  Serious: No
  Sender: FDA-Public Use
  Company Number: US-PFIZER INC-202400009469

PATIENT
  Age: 71 Year
  Sex: Female

DRUGS (9)
  1. PAXLOVID [Suspect]
     Active Substance: NIRMATRELVIR\RITONAVIR
     Indication: COVID-19 treatment
     Dosage: UNK
     Dates: start: 20231227, end: 20231231
  2. ROSUVASTATIN [Concomitant]
     Active Substance: ROSUVASTATIN
  3. PURE ENCAPSULATIONS O.N.E. MULTIVITAMIN [Concomitant]
  4. SOLGAR COQ-10 [Concomitant]
  5. FERROCHEL [Concomitant]
  6. VITAMIN B12 [Concomitant]
     Active Substance: CYANOCOBALAMIN
  7. ASPIRIN [Concomitant]
     Active Substance: ASPIRIN
  8. PSYLLIUM HUSKS [Concomitant]
     Active Substance: PSYLLIUM HUSK
  9. CALCIUM [Concomitant]
     Active Substance: CALCIUM

REACTIONS (2)
  - Disease recurrence [Not Recovered/Not Resolved]
  - COVID-19 [Not Recovered/Not Resolved]

NARRATIVE: CASE EVENT DATE: 20240105
